FAERS Safety Report 10037774 (Version 1)
Quarter: 2014Q1

REPORT INFORMATION
  Report Type: Spontaneous
  Country: US (occurrence: US)
  Receive Date: 20140326
  Receipt Date: 20140326
  Transmission Date: 20141002
  Serious: No
  Sender: FDA-Public Use
  Company Number: US-PFIZER INC-2014082623

PATIENT
  Age: 71 Year
  Sex: Female
  Weight: 72.56 kg

DRUGS (4)
  1. ADVIL [Suspect]
     Indication: INFLAMMATION
     Dosage: UNK, AS NEEDED
  2. LOVASTATIN [Concomitant]
     Indication: BLOOD CHOLESTEROL INCREASED
     Dosage: 40 MG, DAILY
  3. MENEST [Concomitant]
     Indication: HORMONE REPLACEMENT THERAPY
     Dosage: 0.3 MG, DAILY
  4. ADVIL [Concomitant]
     Dosage: UNK

REACTIONS (1)
  - Dyspepsia [Unknown]
